FAERS Safety Report 17468097 (Version 2)
Quarter: 2020Q1

REPORT INFORMATION
  Report Type: Spontaneous
  Country: JP (occurrence: JP)
  Receive Date: 20200227
  Receipt Date: 20200311
  Transmission Date: 20200409
  Serious: Yes (Other)
  Sender: FDA-Public Use
  Company Number: JP-PFIZER INC-2019540278

PATIENT
  Age: 80 Year
  Sex: Female
  Weight: 56.6 kg

DRUGS (4)
  1. ATORVASTATIN CALCIUM. [Concomitant]
     Active Substance: ATORVASTATIN CALCIUM
     Indication: HYPERLIPIDAEMIA
     Dosage: 5 MG, 1X/DAY
     Route: 048
     Dates: start: 2010
  2. LORBRENA [Suspect]
     Active Substance: LORLATINIB
     Dosage: 100 MG, ALTERNATE DAY
     Route: 048
     Dates: start: 20191217
  3. ISOBIDE [Concomitant]
     Active Substance: ISOSORBIDE
     Indication: METASTASES TO CENTRAL NERVOUS SYSTEM
     Dosage: 30 ML, 2X/DAY
     Route: 048
     Dates: start: 20191115, end: 20191208
  4. LORBRENA [Suspect]
     Active Substance: LORLATINIB
     Indication: LUNG NEOPLASM MALIGNANT
     Dosage: 100 MG, 1X/DAY
     Route: 048
     Dates: start: 20191106, end: 20191209

REACTIONS (5)
  - Pleural effusion [Recovered/Resolved]
  - Pericardial effusion [Recovering/Resolving]
  - Oedema [Not Recovered/Not Resolved]
  - Pulmonary congestion [Recovered/Resolved]
  - Cardiomegaly [Not Recovered/Not Resolved]

NARRATIVE: CASE EVENT DATE: 20191209
